FAERS Safety Report 19439449 (Version 2)
Quarter: 2022Q2

REPORT INFORMATION
  Report Type: Spontaneous
  Country: CA (occurrence: CA)
  Receive Date: 20210619
  Receipt Date: 20220625
  Transmission Date: 20220720
  Serious: Yes (Hospitalization, Other)
  Sender: FDA-Public Use
  Company Number: None

PATIENT
  Age: 61 Year
  Sex: Male

DRUGS (12)
  1. GEMCITABINE [Suspect]
     Active Substance: GEMCITABINE
     Indication: Chemotherapy
  2. ABRAXANE [Suspect]
     Active Substance: PACLITAXEL
     Indication: Chemotherapy
     Dosage: POWDER FOR SUSPENSION INTRAVENOUS, INJECTABLE SUSPENSION
  3. BISOPROLOL [Concomitant]
     Active Substance: BISOPROLOL
  4. CLOPIDOGREL [Concomitant]
     Active Substance: CLOPIDOGREL BISULFATE
  5. EZETIMIBE [Concomitant]
     Active Substance: EZETIMIBE
  6. HUMULIN N [Concomitant]
     Active Substance: INSULIN HUMAN
     Dosage: SUSPENSION SUBCUTANEOUS
  7. HUMULIN R [Concomitant]
     Active Substance: INSULIN HUMAN
     Dosage: SOLUTION INTRAMUSCULAR
  8. HYDROMORPHONE [Concomitant]
     Active Substance: HYDROMORPHONE
  9. JANUVIA [Concomitant]
     Active Substance: SITAGLIPTIN PHOSPHATE
     Route: 048
  10. METFORMIN [Concomitant]
     Active Substance: METFORMIN HYDROCHLORIDE
  11. METOCLOPRAMIDE [Concomitant]
     Active Substance: METOCLOPRAMIDE
  12. ROSUVASTATIN [Concomitant]
     Active Substance: ROSUVASTATIN

REACTIONS (2)
  - Febrile neutropenia [Recovering/Resolving]
  - Colitis [Recovering/Resolving]
